FAERS Safety Report 11932510 (Version 1)
Quarter: 2016Q1

REPORT INFORMATION
  Report Type: Spontaneous
  Country: US (occurrence: US)
  Receive Date: 20160120
  Receipt Date: 20160120
  Transmission Date: 20160526
  Serious: No
  Sender: FDA-Public Use
  Company Number: US-SHIRE-US201600456

PATIENT
  Age: 92 Year
  Sex: Female

DRUGS (2)
  1. CARBATROL [Suspect]
     Active Substance: CARBAMAZEPINE
     Indication: FACIAL NEURALGIA
     Dosage: UNK, UNKNOWN
     Route: 048
  2. ZOLOFT [Concomitant]
     Active Substance: SERTRALINE HYDROCHLORIDE
     Indication: DEPRESSION
     Dosage: UNK, UNKNOWN
     Route: 065

REACTIONS (1)
  - Muscular weakness [Not Recovered/Not Resolved]

NARRATIVE: CASE EVENT DATE: 2015
